FAERS Safety Report 8008539-7 (Version None)
Quarter: 2011Q4

REPORT INFORMATION
  Report Type: 
  Country: None (occurrence: None)
  Receive Date: 20111123
  Receipt Date: 20111010
  Transmission Date: 20120403
  Serious: No
  Sender: FDA-Public Use
  Company Number: 337566

PATIENT
  Age: 69 Year
  Sex: Female

DRUGS (1)
  1. VICTOZA [Suspect]
     Indication: TYPE 2 DIABETES MELLITUS
     Dosage: 0.6 MG, QD, SUBCUTANEOUS, 1.2 MG, QD, SUBCUTANEOUS
     Route: 058

REACTIONS (9)
  - DYSPEPSIA [None]
  - ERUCTATION [None]
  - NAUSEA [None]
  - DYSGEUSIA [None]
  - ABDOMINAL DISCOMFORT [None]
  - FATIGUE [None]
  - DIZZINESS [None]
  - BLOOD GLUCOSE INCREASED [None]
  - FLATULENCE [None]
